FAERS Safety Report 18158009 (Version 1)
Quarter: 2020Q3

REPORT INFORMATION
  Report Type: Spontaneous
  Country: US (occurrence: US)
  Receive Date: 20200817
  Receipt Date: 20200817
  Transmission Date: 20201103
  Serious: No
  Sender: FDA-Public Use
  Company Number: US-MEDEXUS PHARMA, INC.-2020MED00167

PATIENT
  Sex: Female
  Weight: 69.39 kg

DRUGS (4)
  1. FOLIC ACID. [Concomitant]
     Active Substance: FOLIC ACID
     Dosage: UNK, 1X/DAY
  2. RASUVO [Suspect]
     Active Substance: METHOTREXATE SODIUM
     Indication: RHEUMATOID ARTHRITIS
     Dosage: 12.5 MG, 1X/WEEK ON FRIDAYS INJECTED INTO BELLY OR THIGH
  3. MELOXICAM. [Concomitant]
     Active Substance: MELOXICAM
     Dosage: 50 MG, 1X/DAY
  4. ENBREL [Concomitant]
     Active Substance: ETANERCEPT
     Dosage: ^AS SHE GETS SAMPLES FROM HER DOCTOR^

REACTIONS (2)
  - Musculoskeletal stiffness [Not Recovered/Not Resolved]
  - Product dispensing issue [Recovered/Resolved]
